FAERS Safety Report 15860965 (Version 5)
Quarter: 2019Q2

REPORT INFORMATION
  Report Type: Spontaneous
  Country: US (occurrence: US)
  Receive Date: 20190124
  Receipt Date: 20190510
  Transmission Date: 20190711
  Serious: Yes (Other)
  Sender: FDA-Public Use
  Company Number: US-BRISTOL-MYERS SQUIBB COMPANY-BMS-2019-005282

PATIENT
  Sex: Female
  Weight: 86.17 kg

DRUGS (1)
  1. ORENCIA [Suspect]
     Active Substance: ABATACEPT
     Indication: RHEUMATOID ARTHRITIS
     Dosage: 125 MG, QWK AS DIRECTED
     Route: 058
     Dates: start: 201812

REACTIONS (7)
  - Dizziness [Unknown]
  - Gastroenteritis viral [Unknown]
  - Inflammation [Unknown]
  - Pain [Unknown]
  - Influenza [Unknown]
  - Malaise [Unknown]
  - Kidney infection [Unknown]
